FAERS Safety Report 5465592-2 (Version None)
Quarter: 2007Q3

REPORT INFORMATION
  Report Type: 
  Country: None (occurrence: None)
  Receive Date: 20070919
  Receipt Date: 20070913
  Transmission Date: 20080115
  Serious: Yes (Hospitalization)
  Sender: FDA-Public Use
  Company Number: TPG2007A00619

PATIENT
  Sex: Male

DRUGS (1)
  1. LEUPROLIDE ACETATE [Suspect]
     Indication: PROSTATE CANCER
     Dosage: 11.25 MG (11.25 MG, INTERMITTENT) SUBCUTANEOUS
     Route: 058

REACTIONS (2)
  - AGGRESSION [None]
  - PSYCHOTIC DISORDER [None]
